FAERS Safety Report 23021694 (Version 3)
Quarter: 2023Q4

REPORT INFORMATION
  Report Type: Spontaneous
  Country: US (occurrence: US)
  Receive Date: 20231003
  Receipt Date: 20231019
  Transmission Date: 20240110
  Serious: Yes (Disabling, Other)
  Sender: FDA-Public Use
  Company Number: US-PFIZER INC-202300307734

PATIENT
  Age: 15 Year
  Sex: Male
  Weight: 81.633 kg

DRUGS (6)
  1. PAXLOVID [Suspect]
     Active Substance: NIRMATRELVIR\RITONAVIR
     Indication: COVID-19 treatment
     Dosage: UNK UNK, 2X/DAY
     Route: 048
     Dates: start: 20230830, end: 20230904
  2. PAXLOVID [Suspect]
     Active Substance: NIRMATRELVIR\RITONAVIR
     Dosage: UNK UNK, 2X/DAY
     Dates: start: 20230830, end: 20230904
  3. ALBUTEROL [Concomitant]
     Active Substance: ALBUTEROL
     Dosage: UNK UNK, AS NEEDED
  4. CARBINOXAMINE [Concomitant]
     Active Substance: CARBINOXAMINE
     Dosage: UNK, 2X/DAY
  5. FAMOTIDINE [Concomitant]
     Active Substance: FAMOTIDINE
     Dosage: UNK, 2X/DAY
  6. PULMICORT TURBUHALER [Concomitant]
     Active Substance: BUDESONIDE
     Indication: Asthma
     Dosage: UNK UNK, 2X/DAY
     Route: 048
     Dates: start: 2015

REACTIONS (5)
  - Therapeutic product effect incomplete [Unknown]
  - Bronchospasm [Not Recovered/Not Resolved]
  - Muscle spasms [Recovered/Resolved]
  - Oropharyngeal pain [Not Recovered/Not Resolved]
  - Paraesthesia [Unknown]

NARRATIVE: CASE EVENT DATE: 20230830
